FAERS Safety Report 11794007 (Version 3)
Quarter: 2020Q3

REPORT INFORMATION
  Report Type: Report from Study
  Country: FR (occurrence: FR)
  Receive Date: 20151202
  Receipt Date: 20200701
  Transmission Date: 20201102
  Serious: Yes (Other)
  Sender: FDA-Public Use
  Company Number: FR-SA-2015SA199333

PATIENT

DRUGS (15)
  1. FLUOROURACIL. [Suspect]
     Active Substance: FLUOROURACIL
     Dosage: FOLFIRI?AFLIBERCEPT REGIMEN WAS RE?INTRODUCED WITHOUT DOSE REDUCTION
  2. IRINOTECAN [Suspect]
     Active Substance: IRINOTECAN
     Dosage: FOLFIRI?AFLIBERCEPT REGIMEN WAS RE?INTRODUCED WITHOUT DOSE REDUCTION
  3. OXALIPLATIN. [Concomitant]
     Active Substance: OXALIPLATIN
  4. BEVACIZUMAB. [Concomitant]
     Active Substance: BEVACIZUMAB
     Indication: COLORECTAL CANCER METASTATIC
     Dosage: UNK
  5. AFLIBERCEPT [Suspect]
     Active Substance: AFLIBERCEPT
     Dosage: UNK, QCY, FOLFIRI?AFLIBERCEPT REGIMEN WAS RE?INTRODUCED WITHOUT DOSE REDUCTION
  6. FOLINIC ACID [Suspect]
     Active Substance: LEUCOVORIN
     Dosage: AS PART OF FOLFIRI
     Route: 065
  7. BEVACIZUMAB. [Concomitant]
     Active Substance: BEVACIZUMAB
  8. FLUOROURACIL. [Suspect]
     Active Substance: FLUOROURACIL
     Indication: COLORECTAL CANCER METASTATIC
     Dosage: UNK UNK, QCY, AS PART OF FOLFORINOX CHEMOTHERAPY
  9. FLUOROURACIL. [Suspect]
     Active Substance: FLUOROURACIL
     Dosage: AS PART OF FOLFIRI
  10. FOLINIC ACID [Suspect]
     Active Substance: LEUCOVORIN
     Indication: COLORECTAL CANCER METASTATIC
     Dosage: UNK, QCY, AS PART OF FOLFORINOX CHEMOTHERAPY
     Route: 065
  11. FOLINIC ACID [Suspect]
     Active Substance: LEUCOVORIN
     Dosage: FOLFIRI?AFLIBERCEPT REGIMEN WAS RE?INTRODUCED WITHOUT DOSE REDUCTION
  12. AFLIBERCEPT [Suspect]
     Active Substance: AFLIBERCEPT
     Indication: COLORECTAL CANCER METASTATIC
  13. IRINOTECAN [Suspect]
     Active Substance: IRINOTECAN
     Indication: COLORECTAL CANCER METASTATIC
     Dosage: UNK, QCY, AS PART OF FOLFORINOX CHEMOTHERAPY
  14. IRINOTECAN [Suspect]
     Active Substance: IRINOTECAN
     Dosage: UNK UNK, QCY, AS PART OF FOLFIRI
  15. OXALIPLATIN. [Concomitant]
     Active Substance: OXALIPLATIN
     Indication: COLORECTAL CANCER METASTATIC
     Dosage: UNK UNK, QCY

REACTIONS (3)
  - Colitis microscopic [Recovering/Resolving]
  - Diarrhoea [Recovering/Resolving]
  - Weight decreased [Recovering/Resolving]
